FAERS Safety Report 18086859 (Version 2)
Quarter: 2020Q3

REPORT INFORMATION
  Report Type: Spontaneous
  Country: PL (occurrence: PL)
  Receive Date: 20200729
  Receipt Date: 20200909
  Transmission Date: 20201103
  Serious: Yes (Other)
  Sender: FDA-Public Use
  Company Number: PL-TEVA-2020-PL-1805876

PATIENT
  Sex: Male

DRUGS (7)
  1. FOLINIC ACID [Suspect]
     Active Substance: LEUCOVORIN
     Indication: RECTAL CANCER
     Dosage: FOLFIRI PROGRAM AND FOLFOX REGIMEN (CONTINUED UNTIL NOVEMBER 2015)
     Route: 065
     Dates: start: 201409
  2. PANITUMUMAB [Suspect]
     Active Substance: PANITUMUMAB
     Indication: RECTAL CANCER
     Route: 065
     Dates: start: 201609, end: 201705
  3. TIPIRACIL/TRIFLURIDINE [Suspect]
     Active Substance: TIPIRACIL HYDROCHLORIDE\TRIFLURIDINE
     Indication: RECTAL CANCER
     Route: 065
  4. OXALIPLATIN. [Suspect]
     Active Substance: OXALIPLATIN
     Indication: RECTAL CANCER
     Dosage: FOLFOX CHEMOTHERAPY
     Route: 065
     Dates: end: 201511
  5. FLUOROURACIL. [Suspect]
     Active Substance: FLUOROURACIL
     Indication: RECTAL CANCER
     Dosage: FOLFIRI PROGRAM AND FOLFOX REGIMEN (CONTINUED UNTIL NOVEMBER 2015)
     Route: 065
     Dates: start: 201409
  6. BEVACIZUMAB. [Suspect]
     Active Substance: BEVACIZUMAB
     Indication: RECTAL CANCER
     Route: 065
     Dates: end: 201511
  7. IRINOTECAN [Suspect]
     Active Substance: IRINOTECAN
     Indication: RECTAL CANCER
     Dosage: FOLFIRI PROGRAM
     Route: 065
     Dates: start: 201409

REACTIONS (6)
  - Diarrhoea [Recovered/Resolved]
  - Neutropenia [Recovered/Resolved]
  - Proteinuria [Unknown]
  - Polyneuropathy [Unknown]
  - Skin lesion [Unknown]
  - Anaemia [Recovered/Resolved]
